FAERS Safety Report 25478420 (Version 2)
Quarter: 2025Q3

REPORT INFORMATION
  Report Type: Spontaneous
  Country: JP (occurrence: JP)
  Receive Date: 20250625
  Receipt Date: 20250714
  Transmission Date: 20251020
  Serious: Yes (Hospitalization, Other)
  Sender: ALEXION PHARMACEUTICALS
  Company Number: JP-ASTRAZENECA-250061908_032420_P_1

PATIENT
  Age: 68 Year
  Sex: Male

DRUGS (4)
  1. TEZSPIRE [Suspect]
     Active Substance: TEZEPELUMAB-EKKO
     Indication: Asthma
  2. TEZSPIRE [Suspect]
     Active Substance: TEZEPELUMAB-EKKO
  3. SYMBICORT [Suspect]
     Active Substance: BUDESONIDE\FORMOTEROL FUMARATE DIHYDRATE
     Indication: Chronic obstructive pulmonary disease
  4. PREDNISOLONE [Concomitant]
     Active Substance: PREDNISOLONE

REACTIONS (12)
  - Colon cancer [Unknown]
  - Pneumothorax [Unknown]
  - Pneumonia [Unknown]
  - Weight decreased [Unknown]
  - Dyspnoea [Unknown]
  - Wheezing [Unknown]
  - Feeding disorder [Unknown]
  - Muscular weakness [Unknown]
  - Muscle atrophy [Unknown]
  - Chronic obstructive pulmonary disease [Unknown]
  - Back pain [Unknown]
  - Injection site pain [Unknown]

NARRATIVE: CASE EVENT DATE: 20170101
